FAERS Safety Report 18442591 (Version 1)
Quarter: 2020Q4

REPORT INFORMATION
  Report Type: Other
  Country: FR (occurrence: FR)
  Receive Date: 20201029
  Receipt Date: 20201029
  Transmission Date: 20210114
  Serious: Yes (Hospitalization, Other)
  Sender: FDA-Public Use
  Company Number: FR-DENTSPLY-2020SCDP000344

PATIENT
  Age: 22 Year
  Sex: Female

DRUGS (9)
  1. MORPHINE HYDROCHLORIDE [Concomitant]
     Active Substance: MORPHINE HYDROCHLORIDE
     Indication: DELIVERY
     Dosage: 1 MILLIGRAM, TOTAL
     Route: 050
  2. LEVOBUPIVACAINE [Suspect]
     Active Substance: LEVOBUPIVACAINE
     Indication: DELIVERY
     Dosage: UNK
     Route: 050
  3. PHENYLEPHRINE [Suspect]
     Active Substance: PHENYLEPHRINE HYDROCHLORIDE
     Indication: PRODUCT USED FOR UNKNOWN INDICATION
     Dosage: 1 UNK
     Route: 042
  4. SYNTOCINON [Suspect]
     Active Substance: OXYTOCIN
     Indication: DELIVERY
     Dosage: 10 INTERNATIONAL UNIT
     Route: 042
  5. CEFAZOLINE [CEFAZOLIN] [Suspect]
     Active Substance: CEFAZOLIN
     Indication: ANTIBIOTIC PROPHYLAXIS
     Dosage: 2 GRAM, TOTAL
     Route: 042
  6. XYLOCAINE WITH ADRENALINE (EPINEPHRINE) [Suspect]
     Active Substance: EPINEPHRINE BITARTRATE\LIDOCAINE HYDROCHLORIDE
     Indication: DELIVERY
     Dosage: 400 MILLIGRAM
     Route: 050
  7. DEXAMETHASONE. [Suspect]
     Active Substance: DEXAMETHASONE
     Indication: CAESAREAN SECTION
     Dosage: 4 MILLIGRAM, TOTAL
     Route: 042
  8. SUFENTA [Concomitant]
     Active Substance: SUFENTANIL CITRATE
     Indication: DELIVERY
     Dosage: UNK
     Route: 050
  9. DROPERIDOL. [Suspect]
     Active Substance: DROPERIDOL
     Indication: PROPHYLAXIS OF NAUSEA AND VOMITING
     Dosage: 0.63 MILLIGRAM, TOTAL
     Route: 042

REACTIONS (2)
  - Mydriasis [Recovered/Resolved]
  - Coma [Recovered/Resolved]

NARRATIVE: CASE EVENT DATE: 20200901
